FAERS Safety Report 5749688-3 (Version None)
Quarter: 2008Q2

REPORT INFORMATION
  Report Type: 
  Country: None (occurrence: None)
  Receive Date: 20080521
  Receipt Date: 20080521
  Transmission Date: 20081010
  Serious: Yes (Disabling)
  Sender: FDA-Public Use
  Company Number: None

PATIENT
  Age: 47 Year
  Sex: Male

DRUGS (4)
  1. BEVACIZUMAB [Suspect]
     Indication: GASTROINTESTINAL FISTULA
     Dosage: 325 MG Q 3W PR
     Dates: start: 20070507, end: 20070711
  2. ENOXAPARIN SODIUM [Concomitant]
  3. THYROXIN [Concomitant]
  4. INSULIN [Concomitant]

REACTIONS (2)
  - ABDOMINAL PAIN [None]
  - FISTULA [None]
